FAERS Safety Report 18962309 (Version 2)
Quarter: 2021Q2

REPORT INFORMATION
  Report Type: Spontaneous
  Country: ES (occurrence: ES)
  Receive Date: 20210302
  Receipt Date: 20210412
  Transmission Date: 20210717
  Serious: No
  Sender: FDA-Public Use
  Company Number: ES-TOLMAR, INC.-21ES025697

PATIENT
  Age: 91 Year
  Sex: Male

DRUGS (2)
  1. ELIGARD [Suspect]
     Active Substance: LEUPROLIDE ACETATE
     Indication: PROSTATE CANCER
     Dosage: 45 MG, Q 6 MONTH
     Route: 065
     Dates: start: 20210215
  2. ELIGARD [Suspect]
     Active Substance: LEUPROLIDE ACETATE
     Dosage: 45 MG, Q 6 MONTH
     Route: 065
     Dates: start: 200805

REACTIONS (3)
  - Underdose [Unknown]
  - Drug administered in wrong device [Unknown]
  - Product preparation error [Unknown]

NARRATIVE: CASE EVENT DATE: 20210215
